FAERS Safety Report 4288666-0 (Version None)
Quarter: 2004Q1

REPORT INFORMATION
  Report Type: 
  Country: None (occurrence: None)
  Receive Date: 20040209
  Receipt Date: 20031110
  Transmission Date: 20041129
  Serious: Yes (Hospitalization, Other)
  Sender: FDA-Public Use
  Company Number: WAES 0311USA00974

PATIENT
  Age: 49 Year
  Sex: Female

DRUGS (4)
  1. FOSAMAX [Suspect]
     Indication: OSTEOPENIA
     Route: 048
     Dates: start: 19990101, end: 20030101
  2. FOSAMAX [Suspect]
     Indication: FRACTURE
     Route: 048
     Dates: start: 19990101, end: 20030101
  3. ESTROGENS (UNSPECIFIED) [Concomitant]
     Indication: MENOPAUSAL SYMPTOMS
     Dates: start: 19990101
  4. PREDNISONE [Concomitant]
     Indication: ASTHMA

REACTIONS (3)
  - BONE DISORDER [None]
  - BONE FORMATION DECREASED [None]
  - FRACTURE DELAYED UNION [None]
